FAERS Safety Report 18784676 (Version 1)
Quarter: 2021Q1

REPORT INFORMATION
  Report Type: Spontaneous
  Country: GB (occurrence: GB)
  Receive Date: 20210125
  Receipt Date: 20210125
  Transmission Date: 20210419
  Serious: Yes (Hospitalization)
  Sender: FDA-Public Use
  Company Number: GB-VERTEX PHARMACEUTICALS-2021-000760

PATIENT
  Sex: Female

DRUGS (2)
  1. KAFTRIO [Suspect]
     Active Substance: ELEXACAFTOR\IVACAFTOR\TEZACAFTOR
     Indication: CYSTIC FIBROSIS
     Dosage: (75 MG IVACAFTOR/50 MG TEZACAFTOR/100 MG ELEXACAFTOR) DAILY
     Route: 048
     Dates: start: 20200525
  2. KALYDECO [Suspect]
     Active Substance: IVACAFTOR
     Indication: CYSTIC FIBROSIS
     Dosage: 150 MG IVACAFTOR, DAILY
     Route: 048
     Dates: start: 20200525

REACTIONS (1)
  - Infection [Unknown]

NARRATIVE: CASE EVENT DATE: 20201216
